FAERS Safety Report 16767943 (Version 3)
Quarter: 2021Q1

REPORT INFORMATION
  Report Type: Report from Study
  Country: CO (occurrence: CO)
  Receive Date: 20190903
  Receipt Date: 20210114
  Transmission Date: 20210419
  Serious: Yes (Other)
  Sender: FDA-Public Use
  Company Number: CO-ASTELLAS-2019US034895

PATIENT
  Age: 86 Year
  Sex: Male
  Weight: 57 kg

DRUGS (2)
  1. ENZALUTAMIDE [Suspect]
     Active Substance: ENZALUTAMIDE
     Indication: HORMONE-REFRACTORY PROSTATE CANCER
     Dosage: 160 MG, ONCE DAILY (EVERY 24 HOURS)
     Route: 048
     Dates: start: 20190717
  2. CARBAMAZEPINE. [Concomitant]
     Active Substance: CARBAMAZEPINE
     Indication: PRODUCT USED FOR UNKNOWN INDICATION
     Dosage: UNK UNK (HALF A TABLET IN THE MORNING + IN THE EVENING), EVERY 12 HOURS
     Route: 065

REACTIONS (8)
  - Dysphagia [Not Recovered/Not Resolved]
  - Rectal haemorrhage [Recovering/Resolving]
  - Constipation [Recovering/Resolving]
  - Pain in extremity [Not Recovered/Not Resolved]
  - Herpes zoster [Recovered/Resolved]
  - Mobility decreased [Not Recovered/Not Resolved]
  - Oropharyngeal discomfort [Unknown]
  - Cough [Not Recovered/Not Resolved]

NARRATIVE: CASE EVENT DATE: 20190727
